FAERS Safety Report 6614307-0 (Version None)
Quarter: 2010Q1

REPORT INFORMATION
  Report Type: 
  Country: None (occurrence: None)
  Receive Date: 20100304
  Receipt Date: 20100223
  Transmission Date: 20100710
  Serious: Yes (Other)
  Sender: FDA-Public Use
  Company Number: KR-ELI_LILLY_AND_COMPANY-KR201002007259

PATIENT
  Age: 41 Year
  Sex: Male

DRUGS (2)
  1. GEMZAR [Suspect]
     Indication: URETERIC CANCER
     Dosage: 1000 MG/M2, ON DAYS 1, 8 AND 15
     Route: 065
  2. CISPLATIN [Concomitant]
     Indication: URETERIC CANCER
     Dosage: 70 MG/M2, ON DAY 2 EVERY 28 DAYS
     Route: 065

REACTIONS (1)
  - ENTEROCOLITIS [None]
